FAERS Safety Report 8197583-5 (Version None)
Quarter: 2012Q1

REPORT INFORMATION
  Report Type: 
  Country: None (occurrence: None)
  Receive Date: 20120309
  Receipt Date: 20120301
  Transmission Date: 20120608
  Serious: Yes (Hospitalization, Other)
  Sender: FDA-Public Use
  Company Number: ES-B.I. PHARMACEUTICALS,INC./RIDGEFIELD-2012-EU-01261GD

PATIENT
  Age: 45 Year
  Sex: Male

DRUGS (3)
  1. NEVIRAPINE [Suspect]
     Indication: HIV INFECTION CDC CATEGORY A2
     Dates: start: 20091101
  2. TRUVADA [Suspect]
     Indication: HIV INFECTION CDC CATEGORY A2
     Dates: start: 20091101
  3. METHYLPREDNISOLONE [Suspect]
     Indication: PNEUMONIA
     Dosage: 1 MG/KG/DAY
     Dates: start: 20100201

REACTIONS (10)
  - LYMPHADENOPATHY [None]
  - HYPOTENSION [None]
  - KAPOSI'S SARCOMA [None]
  - IMMUNE RECONSTITUTION SYNDROME [None]
  - PANCYTOPENIA [None]
  - HEPATOSPLENOMEGALY [None]
  - RESPIRATORY FAILURE [None]
  - PYREXIA [None]
  - ANAEMIA [None]
  - PNEUMONIA [None]
